FAERS Safety Report 24287298 (Version 1)
Quarter: 2024Q3

REPORT INFORMATION
  Report Type: Spontaneous
  Country: US (occurrence: US)
  Receive Date: 20240905
  Receipt Date: 20240905
  Transmission Date: 20241017
  Serious: No
  Sender: ROCHE
  Company Number: US-ROCHE-3542261

PATIENT

DRUGS (4)
  1. OCREVUS [Suspect]
     Active Substance: OCRELIZUMAB
     Indication: Product used for unknown indication
     Route: 065
  2. KESIMPTA [Suspect]
     Active Substance: OFATUMUMAB
     Indication: Product used for unknown indication
     Route: 065
  3. MAVENCLAD [Concomitant]
     Active Substance: CLADRIBINE
  4. TECFIDERA [Concomitant]
     Active Substance: DIMETHYL FUMARATE

REACTIONS (8)
  - Nausea [Unknown]
  - Dizziness [Unknown]
  - Headache [Unknown]
  - Fatigue [Unknown]
  - Bone pain [Unknown]
  - Arthralgia [Unknown]
  - Lymphocyte count decreased [Unknown]
  - Nasopharyngitis [Unknown]
